FAERS Safety Report 12728023 (Version 1)
Quarter: 2016Q3

REPORT INFORMATION
  Report Type: Spontaneous
  Country: IT (occurrence: IT)
  Receive Date: 20160909
  Receipt Date: 20160909
  Transmission Date: 20161109
  Serious: Yes (Other)
  Sender: FDA-Public Use
  Company Number: IT-OTSUKA-2016_021499

PATIENT
  Sex: Male
  Weight: 88 kg

DRUGS (3)
  1. CARDIOPIRIN [Concomitant]
     Active Substance: ASPIRIN
     Indication: PRODUCT USED FOR UNKNOWN INDICATION
     Dosage: UNK (FROM 7 YEARS)
     Route: 065
  2. PLETAL [Suspect]
     Active Substance: CILOSTAZOL
     Indication: PERIPHERAL ARTERIAL OCCLUSIVE DISEASE
     Dosage: 200 MG, QD
     Route: 048
     Dates: start: 20160731, end: 20160825
  3. OMNIC [Concomitant]
     Active Substance: TAMSULOSIN HYDROCHLORIDE
     Indication: BENIGN PROSTATIC HYPERPLASIA
     Dosage: UNK, (FROM 1 YEAR)
     Route: 065

REACTIONS (7)
  - Malaise [Recovering/Resolving]
  - Headache [Recovering/Resolving]
  - Tachycardia [Recovering/Resolving]
  - Product use issue [Unknown]
  - Tremor [Recovering/Resolving]
  - Dizziness postural [Recovering/Resolving]
  - Bedridden [Unknown]

NARRATIVE: CASE EVENT DATE: 20160731
